FAERS Safety Report 7682479-5 (Version None)
Quarter: 2011Q3

REPORT INFORMATION
  Report Type: 
  Country: None (occurrence: None)
  Receive Date: 20110810
  Receipt Date: 20110725
  Transmission Date: 20111222
  Serious: Yes (Other)
  Sender: FDA-Public Use
  Company Number: 2010RR-37326

PATIENT
  Age: 26 Year
  Sex: Male

DRUGS (1)
  1. IBUPROFEN [Suspect]
     Indication: BACK PAIN

REACTIONS (10)
  - FOOD INTOLERANCE [None]
  - DUODENAL STENOSIS [None]
  - MALNUTRITION [None]
  - GASTRIC DILATATION [None]
  - DEHYDRATION [None]
  - IRON DEFICIENCY ANAEMIA [None]
  - NAUSEA [None]
  - VOMITING [None]
  - DUODENAL ULCER [None]
  - WEIGHT DECREASED [None]
